FAERS Safety Report 5762764-4 (Version None)
Quarter: 2008Q2

REPORT INFORMATION
  Report Type: 
  Country: None (occurrence: None)
  Receive Date: 20080609
  Receipt Date: 20080508
  Transmission Date: 20081010
  Serious: No
  Sender: FDA-Public Use
  Company Number: US-BAYER-200823040NA

PATIENT
  Age: 47 Year
  Sex: Male

DRUGS (4)
  1. NEXAVAR [Suspect]
     Indication: HEPATIC NEOPLASM MALIGNANT
     Dosage: TOTAL DAILY DOSE: 800 MG  UNIT DOSE: 200 MG
     Route: 048
     Dates: start: 20080430, end: 20080507
  2. OXYCONTIN [Concomitant]
  3. PERCOCET [Concomitant]
  4. XANAX [Concomitant]

REACTIONS (7)
  - ACNE [None]
  - ARTHRALGIA [None]
  - DYSPEPSIA [None]
  - ERYTHEMA [None]
  - NAUSEA [None]
  - ORAL PAIN [None]
  - VOMITING [None]
